FAERS Safety Report 7726389-3 (Version None)
Quarter: 2011Q3

REPORT INFORMATION
  Report Type: 
  Country: None (occurrence: None)
  Receive Date: 20110831
  Receipt Date: 20110822
  Transmission Date: 20111222
  Serious: Yes (Other)
  Sender: FDA-Public Use
  Company Number: 1000023082

PATIENT
  Age: 53 Year
  Sex: Male

DRUGS (1)
  1. LEVOTHROID [Suspect]

REACTIONS (3)
  - ARTERIOSPASM CORONARY [None]
  - HYPERTHYROIDISM [None]
  - ACUTE MYOCARDIAL INFARCTION [None]
